FAERS Safety Report 24432056 (Version 1)
Quarter: 2024Q4

REPORT INFORMATION
  Report Type: Spontaneous
  Country: DE (occurrence: DE)
  Receive Date: 20241014
  Receipt Date: 20241014
  Transmission Date: 20250115
  Serious: Yes (Hospitalization, Other)
  Sender: AUROBINDO
  Company Number: DE-002147023-NVSC2023DE009831

PATIENT
  Age: 63 Year
  Sex: Male
  Weight: 98 kg

DRUGS (4)
  1. IRINOTECAN [Suspect]
     Active Substance: IRINOTECAN
     Indication: Colorectal cancer metastatic
     Dosage: 400 MILLIGRAM (400 MG, Q2W)
     Route: 042
     Dates: start: 20221019
  2. FLUOROURACIL [Suspect]
     Active Substance: FLUOROURACIL
     Indication: Colorectal cancer metastatic
     Dosage: 5400 MILLIGRAM (5400 MG, Q2W)
     Route: 042
     Dates: start: 20221019
  3. FLUOROURACIL [Suspect]
     Active Substance: FLUOROURACIL
     Dosage: 900 MILLIGRAM (900 MG, Q2W)
     Route: 042
     Dates: start: 20221019
  4. LEUCOVORIN CALCIUM [Suspect]
     Active Substance: LEUCOVORIN CALCIUM
     Indication: Colorectal cancer metastatic
     Dosage: 900 MILLIGRAM (900 MG, Q2W)
     Route: 042
     Dates: start: 20221019

REACTIONS (1)
  - Febrile neutropenia [Recovered/Resolved]

NARRATIVE: CASE EVENT DATE: 20230115
